FAERS Safety Report 7146304-3 (Version None)
Quarter: 2010Q4

REPORT INFORMATION
  Report Type: 
  Country: None (occurrence: None)
  Receive Date: 20101208
  Receipt Date: 20101122
  Transmission Date: 20110411
  Serious: No
  Sender: FDA-Public Use
  Company Number: US-B.I. PHARMACEUTICALS,INC./RIDGEFIELD-2010-BP-13194BP

PATIENT
  Sex: Female

DRUGS (4)
  1. AGGRENOX [Suspect]
     Indication: TRANSIENT ISCHAEMIC ATTACK
     Route: 048
     Dates: start: 20010101
  2. CRESTOR [Concomitant]
     Indication: BLOOD CHOLESTEROL INCREASED
  3. XALATAN [Concomitant]
     Indication: GLAUCOMA
  4. SYNTHROID [Concomitant]
     Indication: THYROID DISORDER

REACTIONS (2)
  - EXPRESSIVE LANGUAGE DISORDER [None]
  - NERVOUS SYSTEM DISORDER [None]
